FAERS Safety Report 5912354-5 (Version None)
Quarter: 2008Q4

REPORT INFORMATION
  Report Type: 
  Country: None (occurrence: None)
  Receive Date: 20081007
  Receipt Date: 20081007
  Transmission Date: 20090506
  Serious: Yes (Other)
  Sender: FDA-Public Use
  Company Number: None

PATIENT
  Age: 80 Year
  Sex: Female
  Weight: 68.9467 kg

DRUGS (1)
  1. PRAVASTATIN [Suspect]
     Indication: BLOOD CHOLESTEROL INCREASED
     Dosage: 80 MG ONE DAILY
     Dates: start: 20081003, end: 20081006

REACTIONS (3)
  - DRUG TOLERANCE DECREASED [None]
  - NERVOUSNESS [None]
  - TINNITUS [None]
